FAERS Safety Report 7529018 (Version 7)
Quarter: 2013Q1

REPORT INFORMATION
  Report Type: Report from Study
  Country: BR (occurrence: BR)
  Receive Date: 20100805
  Receipt Date: 20130319
  Transmission Date: 20140127
  Serious: Yes (Hospitalization, Other)
  Sender: FDA-Public Use
  Company Number: BR-ROCHE-718423

PATIENT
  Age: 70 None
  Sex: Male
  Weight: 80 kg

DRUGS (21)
  1. ACTEMRA [Suspect]
     Indication: RHEUMATOID ARTHRITIS
     Dosage: FORM: INFUSION;12 INFUSIONS
     Route: 042
     Dates: start: 20091201, end: 20110104
  2. ACTEMRA [Suspect]
     Route: 042
  3. LISINOPRIL [Concomitant]
  4. TORSILAX [Concomitant]
     Indication: PAIN
  5. FOLIC ACID [Concomitant]
  6. CARBAMAZEPINE [Concomitant]
     Indication: CONVULSION
     Route: 065
  7. CHLOROQUINE [Concomitant]
     Route: 065
  8. RANITIDINE [Concomitant]
  9. FAMOTIDINE [Concomitant]
     Route: 065
  10. BENZBROMARONA [Concomitant]
     Dosage: DRUG REPORTED AS BENZOBROMARONA
     Route: 065
  11. DEPURAN [Concomitant]
  12. VITAMIN B COMPLEX [Concomitant]
  13. TRAMAL [Concomitant]
     Indication: PAIN
  14. OMEPRAZOLE [Concomitant]
     Route: 065
  15. LISINOPRIL [Concomitant]
     Route: 065
  16. PROTOS [Concomitant]
  17. TRAMAL [Concomitant]
     Route: 065
  18. PREDNISONE [Concomitant]
     Route: 065
  19. KETOPROFEN [Concomitant]
     Route: 065
  20. ALLOPURINOL [Concomitant]
     Route: 065
  21. METHOTREXATE [Concomitant]
     Route: 065

REACTIONS (18)
  - Haemorrhoids [Unknown]
  - Duodenal ulcer [Recovered/Resolved]
  - Asthenia [Recovered/Resolved]
  - Myelopathy [Not Recovered/Not Resolved]
  - Drug ineffective [Unknown]
  - Inflammation [Not Recovered/Not Resolved]
  - Blood uric acid increased [Unknown]
  - Arthralgia [Not Recovered/Not Resolved]
  - Arthralgia [Recovered/Resolved]
  - Erysipelas [Recovered/Resolved]
  - Renal impairment [Not Recovered/Not Resolved]
  - Varicose vein ruptured [Recovered/Resolved]
  - Dizziness postural [Recovered/Resolved]
  - Macule [Not Recovered/Not Resolved]
  - Oropharyngeal pain [Not Recovered/Not Resolved]
  - Blood test abnormal [Not Recovered/Not Resolved]
  - Urine analysis abnormal [Not Recovered/Not Resolved]
  - Aphonia [Not Recovered/Not Resolved]
